FAERS Safety Report 16821834 (Version 1)
Quarter: 2019Q3

REPORT INFORMATION
  Report Type: Spontaneous
  Country: US (occurrence: US)
  Receive Date: 20190918
  Receipt Date: 20190918
  Transmission Date: 20191005
  Serious: Yes (Other)
  Sender: FDA-Public Use
  Company Number: US-PFIZER INC-2019397785

PATIENT
  Age: 63 Year
  Sex: Female

DRUGS (1)
  1. IBRANCE [Suspect]
     Active Substance: PALBOCICLIB
     Indication: BREAST CANCER STAGE II
     Dosage: 100 MG, UNK

REACTIONS (9)
  - Essential hypertension [Unknown]
  - Osteoporosis [Unknown]
  - Diabetes mellitus [Unknown]
  - Type IIa hyperlipidaemia [Unknown]
  - White blood cell count decreased [Unknown]
  - Cataract [Unknown]
  - Neoplasm progression [Unknown]
  - Vitamin D deficiency [Unknown]
  - Back pain [Unknown]
